FAERS Safety Report 24450919 (Version 1)
Quarter: 2024Q4

REPORT INFORMATION
  Report Type: Spontaneous
  Country: JP (occurrence: JP)
  Receive Date: 20241017
  Receipt Date: 20241017
  Transmission Date: 20250114
  Serious: Yes (Hospitalization, Other)
  Sender: ALEXION PHARMACEUTICALS
  Company Number: JP-ASTRAZENECA-240106972_013120_P_1

PATIENT
  Age: 72 Year

DRUGS (2)
  1. DURVALUMAB [Suspect]
     Active Substance: DURVALUMAB
     Indication: Hepatocellular carcinoma
  2. TREMELIMUMAB [Suspect]
     Active Substance: TREMELIMUMAB

REACTIONS (7)
  - Pyrexia [Recovering/Resolving]
  - Diarrhoea [Unknown]
  - Vomiting [Unknown]
  - Feeding disorder [Unknown]
  - Dehydration [Recovering/Resolving]
  - Renal impairment [Recovering/Resolving]
  - Hypokalaemia [Recovered/Resolved]
